FAERS Safety Report 6064336-3 (Version None)
Quarter: 2009Q1

REPORT INFORMATION
  Report Type: 
  Country: None (occurrence: None)
  Receive Date: 20090202
  Receipt Date: 20090202
  Transmission Date: 20090719
  Serious: Yes (Other)
  Sender: FDA-Public Use
  Company Number: None

PATIENT
  Age: 74 Year
  Sex: Male

DRUGS (1)
  1. NUPERCAINAL (NCH) (CINCHOCAINE) OINTMENT [Suspect]

REACTIONS (1)
  - EAR OPERATION [None]
